FAERS Safety Report 20838481 (Version 1)
Quarter: 2022Q2

REPORT INFORMATION
  Report Type: Spontaneous
  Country: US (occurrence: None)
  Receive Date: 20220516
  Receipt Date: 20220516
  Transmission Date: 20220721
  Serious: Yes (Other)
  Sender: FDA-Public Use
  Company Number: None

PATIENT
  Age: 28 Year
  Sex: Female
  Weight: 83.9 kg

DRUGS (1)
  1. FERUMOXYTOL [Suspect]
     Active Substance: FERUMOXYTOL
     Indication: Anaemia
     Dosage: OTHER FREQUENCY : ONCE;?
     Route: 042
     Dates: start: 20220428, end: 20220428

REACTIONS (10)
  - Maternal exposure during pregnancy [None]
  - Panic attack [None]
  - Infusion related reaction [None]
  - Agitation [None]
  - Erythema [None]
  - Blood pressure increased [None]
  - Dyspnoea [None]
  - Throat tightness [None]
  - Uterine spasm [None]
  - Anorectal discomfort [None]

NARRATIVE: CASE EVENT DATE: 20220428
